FAERS Safety Report 11767588 (Version 1)
Quarter: 2015Q4

REPORT INFORMATION
  Report Type: Spontaneous
  Country: BR (occurrence: BR)
  Receive Date: 20151123
  Receipt Date: 20151123
  Transmission Date: 20160304
  Serious: Yes (Hospitalization, Other)
  Sender: FDA-Public Use
  Company Number: BR-NOVOPROD-470717

PATIENT
  Sex: Female

DRUGS (9)
  1. LOSARTAN POTASSIUM. [Concomitant]
     Active Substance: LOSARTAN POTASSIUM
     Dosage: 2 TABS IN THE MORNING AND 2 TABS AT NIGHT
  2. VENAFLON [Concomitant]
     Dosage: 2 TABS IN THE MORNING AND 1 TAB AT NIGHT, NOT TAKEN EVERY DAY
  3. GLIFAGE [Concomitant]
     Active Substance: METFORMIN HYDROCHLORIDE
     Indication: DIABETES MELLITUS
     Dosage: 2 TABS IN THE MORNING AND 2 TABS AT NIGHT
  4. BROMAZEPAM [Concomitant]
     Active Substance: BROMAZEPAM
     Dosage: ONLY IN THE MORNING
  5. NOVOLIN N [Suspect]
     Active Substance: INSULIN HUMAN
     Indication: PRODUCT USED FOR UNKNOWN INDICATION
     Dosage: 35 IU, BID ((35 IU IN THE MORNING AND 35 IU AT NIGHT))
     Route: 065
     Dates: start: 2004
  6. OMEPRAZOLE. [Concomitant]
     Active Substance: OMEPRAZOLE
     Dosage: IN THE MORNING
  7. FLUOXETINE [Concomitant]
     Active Substance: FLUOXETINE HYDROCHLORIDE
     Dosage: 1 TAB IN THE MORNING AND 1 TAB AT NIGHT
  8. ATENOLOL. [Concomitant]
     Active Substance: ATENOLOL
     Dosage: 2 TABS IN THE MORNING AND 2 TABS AT NIGHT
  9. SIMVASTATIN. [Concomitant]
     Active Substance: SIMVASTATIN
     Dosage: ONCE A DAY

REACTIONS (3)
  - Blood glucose increased [Unknown]
  - Infarction [Unknown]
  - Diabetic hyperglycaemic coma [Recovered/Resolved]

NARRATIVE: CASE EVENT DATE: 20150216
